FAERS Safety Report 12641210 (Version 3)
Quarter: 2016Q3

REPORT INFORMATION
  Report Type: Spontaneous
  Country: US (occurrence: US)
  Receive Date: 20160810
  Receipt Date: 20160819
  Transmission Date: 20161109
  Serious: No
  Sender: FDA-Public Use
  Company Number: US-PFIZER INC-2016362813

PATIENT
  Age: 83 Year
  Sex: Female
  Weight: 48.53 kg

DRUGS (3)
  1. ADVIL PM [Suspect]
     Active Substance: DIPHENHYDRAMINE CITRATE\IBUPROFEN
     Indication: INITIAL INSOMNIA
  2. ADVIL PM [Suspect]
     Active Substance: DIPHENHYDRAMINE CITRATE\IBUPROFEN
     Indication: ARTHRITIS
     Dosage: ONCE AT BED TIME,AS NEEDED
     Route: 048
     Dates: start: 201607, end: 201607
  3. ADVIL PM [Suspect]
     Active Substance: DIPHENHYDRAMINE CITRATE\IBUPROFEN
     Indication: BACK PAIN

REACTIONS (8)
  - Oropharyngeal pain [Recovered/Resolved]
  - Foreign body [Recovered/Resolved]
  - Dysphagia [Unknown]
  - Dyspnoea [Recovered/Resolved]
  - Cough [Unknown]
  - Sleep disorder [Recovered/Resolved]
  - Product difficult to swallow [Unknown]
  - Vomiting [Unknown]

NARRATIVE: CASE EVENT DATE: 201607
